FAERS Safety Report 10216329 (Version 2)
Quarter: 2014Q2

REPORT INFORMATION
  Report Type: Spontaneous
  Country: JP (occurrence: JP)
  Receive Date: 20140604
  Receipt Date: 20140611
  Transmission Date: 20141212
  Serious: Yes (Hospitalization)
  Sender: FDA-Public Use
  Company Number: JP-PFIZER INC-2014147922

PATIENT
  Age: 70 Year
  Sex: Female

DRUGS (1)
  1. ZITHROMAC [Suspect]
     Indication: ATYPICAL MYCOBACTERIAL INFECTION
     Dosage: 250 MG, 1X/DAY
     Route: 048

REACTIONS (3)
  - Decreased appetite [Unknown]
  - Oedema [Unknown]
  - Inappropriate schedule of drug administration [Unknown]
